FAERS Safety Report 14136998 (Version 2)
Quarter: 2018Q1

REPORT INFORMATION
  Report Type: Report from Study
  Country: US (occurrence: US)
  Receive Date: 20171027
  Receipt Date: 20180123
  Transmission Date: 20180508
  Serious: No
  Sender: FDA-Public Use
  Company Number: US-AMGEN-USASL2017131636

PATIENT
  Age: 70 Year
  Sex: Female
  Weight: 63.49 kg

DRUGS (19)
  1. VITAMIN B12 [Concomitant]
     Active Substance: CYANOCOBALAMIN
     Dosage: 5000 MUG, QD
  2. VITAMIN E [Concomitant]
     Active Substance: .ALPHA.-TOCOPHEROL
     Dosage: 400 UNIT, UNK
     Route: 048
  3. XALATAN [Concomitant]
     Active Substance: LATANOPROST
     Route: 047
  4. UBIQUINOL [Concomitant]
     Active Substance: UBIQUINOL
     Dosage: 200 MG, QD
     Route: 048
  5. PRINIVIL [Concomitant]
     Active Substance: LISINOPRIL
     Dosage: 20 MG, QD
     Route: 048
  6. CALCIUM [Concomitant]
     Active Substance: CALCIUM
  7. AMOXIL [Concomitant]
     Active Substance: AMOXICILLIN
     Dosage: 500 MG, UNK
  8. COQ 10 [Concomitant]
     Active Substance: UBIDECARENONE
  9. COLACE [Concomitant]
     Active Substance: DOCUSATE SODIUM
     Dosage: 100 MG, QD
     Route: 048
  10. ALBUTEROL SULFATE. [Concomitant]
     Active Substance: ALBUTEROL SULFATE
  11. PROTONIX [Concomitant]
     Active Substance: PANTOPRAZOLE SODIUM
  12. IODORAL [Concomitant]
     Active Substance: IODINE\POTASSIUM IODIDE
     Dosage: 12.5 MG, QWK
     Route: 048
  13. REPATHA [Suspect]
     Active Substance: EVOLOCUMAB
     Indication: LOW DENSITY LIPOPROTEIN INCREASED
     Dosage: 140 MG, Q2WK
     Route: 058
  14. QVAR [Concomitant]
     Active Substance: BECLOMETHASONE DIPROPIONATE
     Dosage: 80 MUG/ACTUATION
  15. ANUSOL NOS [Concomitant]
     Active Substance: BALSAM PERU\BENZYL BENZOATE\BISMUTH HYDROXIDE\BISMUTH SUBGALLATE\HYDROCORTISONE ACETATE\ZINC OXIDE
  16. HYDROCORTISONE. [Concomitant]
     Active Substance: HYDROCORTISONE
     Dosage: UNK, AS NECESSARY
     Route: 061
  17. VITAMIN D3 [Concomitant]
     Active Substance: CHOLECALCIFEROL
     Dosage: 1 MILLION/GRAM
     Route: 048
  18. FLUTICASONE PROPIONATE. [Concomitant]
     Active Substance: FLUTICASONE PROPIONATE
     Dosage: 50 MUG/ACTUATION
  19. CALCIUM 500+D3 [Concomitant]
     Active Substance: CALCIUM CARBONATE\CHOLECALCIFEROL
     Dosage: 125 UNIT, UNK
     Route: 048

REACTIONS (3)
  - Asthenia [Unknown]
  - Feeling jittery [Unknown]
  - Upper respiratory tract infection [Recovered/Resolved]
